FAERS Safety Report 6596713-6 (Version None)
Quarter: 2010Q1

REPORT INFORMATION
  Report Type: 
  Country: None (occurrence: None)
  Receive Date: 20100223
  Receipt Date: 20100217
  Transmission Date: 20100710
  Serious: Yes (Hospitalization)
  Sender: FDA-Public Use
  Company Number: IT-BRISTOL-MYERS SQUIBB COMPANY-14981948

PATIENT
  Age: 79 Year
  Sex: Male

DRUGS (1)
  1. COUMADIN [Suspect]
     Route: 048

REACTIONS (2)
  - HEAD INJURY [None]
  - SUBARACHNOID HAEMORRHAGE [None]
